FAERS Safety Report 4876497-X (Version None)
Quarter: 2006Q1

REPORT INFORMATION
  Report Type: 
  Country: None (occurrence: None)
  Receive Date: 20060106
  Receipt Date: 20060104
  Transmission Date: 20060701
  Serious: Yes (Death, Life-Threatening)
  Sender: FDA-Public Use
  Company Number: HQWYE708330NOV04

PATIENT
  Age: 85 Year
  Sex: Male

DRUGS (11)
  1. TIGECYCLINE [Suspect]
     Indication: ABDOMINAL INFECTION
     Dosage: 100 MG LOADING DOSE, THEN 50 MG EVERY 12 HOURS INTRAVENOUS
     Route: 042
     Dates: start: 20041121, end: 20041129
  2. TIGECYCLINE [Suspect]
     Indication: ACINETOBACTER INFECTION
     Dosage: 100 MG LOADING DOSE, THEN 50 MG EVERY 12 HOURS INTRAVENOUS
     Route: 042
     Dates: start: 20041121, end: 20041129
  3. TIGECYCLINE [Suspect]
     Indication: POSTOPERATIVE WOUND INFECTION
     Dosage: 100 MG LOADING DOSE, THEN 50 MG EVERY 12 HOURS INTRAVENOUS
     Route: 042
     Dates: start: 20041121, end: 20041129
  4. OMEPRAZOLE [Concomitant]
  5. HYDROCORTISONE [Concomitant]
  6. INSULIN [Concomitant]
  7. FENTANYL [Concomitant]
  8. ENOXAPARIN SODIUM [Concomitant]
  9. GENTAMICIN [Concomitant]
  10. MORPHINE [Concomitant]
  11. CIPROFLOXACIN [Concomitant]

REACTIONS (4)
  - HYPOTENSION [None]
  - MELAENA [None]
  - SEPSIS [None]
  - THROMBOCYTOPENIA [None]
